FAERS Safety Report 10144004 (Version 1)
Quarter: 2014Q2

REPORT INFORMATION
  Report Type: Spontaneous
  Country: FR (occurrence: FR)
  Receive Date: 20140430
  Receipt Date: 20140430
  Transmission Date: 20141212
  Serious: Yes (Other)
  Sender: FDA-Public Use
  Company Number: FR-BRISTOL-MYERS SQUIBB COMPANY-20681565

PATIENT
  Age: 46 Year
  Sex: Male

DRUGS (1)
  1. MITOMYCIN-C [Suspect]
     Route: 043
     Dates: start: 20130812

REACTIONS (4)
  - Dysuria [Unknown]
  - Calcinosis [Unknown]
  - Burning sensation [Unknown]
  - Ulcer [Unknown]
